FAERS Safety Report 12269440 (Version 1)
Quarter: 2016Q2

REPORT INFORMATION
  Report Type: Report from Study
  Country: CO (occurrence: CO)
  Receive Date: 20160414
  Receipt Date: 20160414
  Transmission Date: 20160815
  Serious: Yes (Other)
  Sender: FDA-Public Use
  Company Number: PHHY2016CO002280

PATIENT
  Sex: Male
  Weight: 54 kg

DRUGS (3)
  1. AFINITOR [Suspect]
     Active Substance: EVEROLIMUS
     Indication: NEUROENDOCRINE TUMOUR
  2. AFINITOR [Suspect]
     Active Substance: EVEROLIMUS
     Indication: BREAST CANCER
     Dosage: 10 MG, QD
     Route: 048
     Dates: start: 20151029
  3. AFINITOR [Suspect]
     Active Substance: EVEROLIMUS
     Indication: RENAL CANCER
     Dosage: 10 MG, QD
     Route: 048
     Dates: end: 20160407

REACTIONS (7)
  - Pulmonary mass [Unknown]
  - Pancreatic disorder [Unknown]
  - Inflammation [Unknown]
  - Infection [Unknown]
  - Purulence [Unknown]
  - Weight decreased [Unknown]
  - Asphyxia [Unknown]
